FAERS Safety Report 6345241-1 (Version None)
Quarter: 2009Q3

REPORT INFORMATION
  Report Type: 
  Country: None (occurrence: None)
  Receive Date: 20090909
  Receipt Date: 20090831
  Transmission Date: 20100115
  Serious: Yes (Other)
  Sender: FDA-Public Use
  Company Number: PHHY2009AU21249

PATIENT
  Sex: Male

DRUGS (2)
  1. EXFORGE [Suspect]
     Indication: HYPERTENSION
     Dosage: 1 TABLET (160/10 MG) PER DAY
     Route: 048
  2. EXFORGE [Suspect]
     Dosage: 2 TABLETS (160/10 MG) PER DAY
     Route: 048

REACTIONS (6)
  - CONDITION AGGRAVATED [None]
  - HYPERTENSION [None]
  - INTERMITTENT CLAUDICATION [None]
  - PERIPHERAL VASCULAR DISORDER [None]
  - RENAL DISORDER [None]
  - RENAL IMPAIRMENT [None]
